FAERS Safety Report 9135219 (Version 1)
Quarter: 2013Q1

REPORT INFORMATION
  Report Type: Spontaneous
  Country: US (occurrence: US)
  Receive Date: 20130304
  Receipt Date: 20130304
  Transmission Date: 20140127
  Serious: Yes (Hospitalization)
  Sender: FDA-Public Use
  Company Number: US-ENDO PHARMACEUTICALS INC.-ENDC20110036

PATIENT
  Age: 49 Year
  Sex: Male

DRUGS (1)
  1. ENDOCET [Suspect]
     Indication: PAIN
     Dosage: 10/325 MG
     Route: 048

REACTIONS (1)
  - Renal failure [Recovered/Resolved]
